FAERS Safety Report 5103979-8 (Version None)
Quarter: 2006Q3

REPORT INFORMATION
  Report Type: 
  Country: None (occurrence: None)
  Receive Date: 20060911
  Receipt Date: 20060905
  Transmission Date: 20061208
  Serious: Yes (Other)
  Sender: FDA-Public Use
  Company Number: 2006-DTPA-CBI-001

PATIENT
  Sex: Female

DRUGS (1)
  1. PENTACIS TECHNETIUM 99 [Suspect]
     Dosage: INJECTION
     Dates: start: 20060606

REACTIONS (4)
  - HEADACHE [None]
  - MALAISE [None]
  - MUSCULOSKELETAL STIFFNESS [None]
  - NECK PAIN [None]
